FAERS Safety Report 8579037-7 (Version None)
Quarter: 2012Q3

REPORT INFORMATION
  Report Type: 
  Country: None (occurrence: None)
  Receive Date: 20120726
  Receipt Date: 20120720
  Transmission Date: 20120928
  Serious: Yes (Other)
  Sender: FDA-Public Use
  Company Number: 1010749

PATIENT
  Age: 7 Year
  Sex: Female
  Weight: 19.5047 kg

DRUGS (1)
  1. COMPOUND W LIQUID/GEL (SALICYLIC ACID 17%) [Suspect]
     Dosage: TOPICAL APPLICATION TWICE DAILY
     Route: 061
     Dates: start: 20120629, end: 20120707

REACTIONS (2)
  - HEADACHE [None]
  - DIZZINESS [None]
